FAERS Safety Report 11757667 (Version 1)
Quarter: 2015Q4

REPORT INFORMATION
  Report Type: Spontaneous
  Country: BR (occurrence: BR)
  Receive Date: 20151120
  Receipt Date: 20151120
  Transmission Date: 20160304
  Serious: Yes (Other)
  Sender: FDA-Public Use
  Company Number: BR-BAYER-2015-465710

PATIENT
  Age: 54 Year
  Sex: Female

DRUGS (2)
  1. MIRENA [Suspect]
     Active Substance: LEVONORGESTREL
     Indication: UTERINE CYST
     Dosage: 20 MCG/24HR, CONT
     Route: 015
     Dates: start: 2014
  2. INDAPAMIDE. [Concomitant]
     Active Substance: INDAPAMIDE
     Indication: CEREBROVASCULAR ACCIDENT

REACTIONS (3)
  - Blood pressure abnormal [None]
  - Blood pressure increased [Not Recovered/Not Resolved]
  - Off label use of device [None]

NARRATIVE: CASE EVENT DATE: 2014
